FAERS Safety Report 18451292 (Version 1)
Quarter: 2020Q4

REPORT INFORMATION
  Report Type: Spontaneous
  Country: US (occurrence: US)
  Receive Date: 20201102
  Receipt Date: 20201102
  Transmission Date: 20210114
  Serious: Yes (Hospitalization, Other)
  Sender: FDA-Public Use
  Company Number: US-SA-2020SA296662

PATIENT

DRUGS (1)
  1. ALEMTUZUMAB [Suspect]
     Active Substance: ALEMTUZUMAB
     Dosage: UNK

REACTIONS (13)
  - Dizziness [Recovering/Resolving]
  - Vomiting [Recovering/Resolving]
  - Tachycardia [Recovering/Resolving]
  - Haemoptysis [Recovering/Resolving]
  - Traumatic lung injury [Recovering/Resolving]
  - Lung infiltration [Recovering/Resolving]
  - Anti-glomerular basement membrane disease [Recovering/Resolving]
  - Nausea [Recovering/Resolving]
  - Jugular vein thrombosis [Recovering/Resolving]
  - Pulmonary alveolar haemorrhage [Recovering/Resolving]
  - Influenza like illness [Recovering/Resolving]
  - Mucosal disorder [Recovering/Resolving]
  - Renal injury [Recovering/Resolving]
